FAERS Safety Report 13659212 (Version 1)
Quarter: 2017Q2

REPORT INFORMATION
  Report Type: Spontaneous
  Country: US (occurrence: US)
  Receive Date: 20170616
  Receipt Date: 20170616
  Transmission Date: 20170830
  Serious: No
  Sender: FDA-Public Use
  Company Number: US-ELI_LILLY_AND_COMPANY-US201706003439

PATIENT
  Sex: Male

DRUGS (1)
  1. TALTZ [Suspect]
     Active Substance: IXEKIZUMAB
     Indication: PSORIASIS
     Dosage: 160 MG, SINGLE
     Route: 058
     Dates: start: 20170210

REACTIONS (3)
  - Injection site rash [Recovered/Resolved]
  - Psoriasis [Not Recovered/Not Resolved]
  - Serum sickness [Not Recovered/Not Resolved]

NARRATIVE: CASE EVENT DATE: 201702
